FAERS Safety Report 26193985 (Version 1)
Quarter: 2025Q4

REPORT INFORMATION
  Report Type: Spontaneous
  Country: CN (occurrence: CN)
  Receive Date: 20251224
  Receipt Date: 20251224
  Transmission Date: 20260117
  Serious: Yes (Other)
  Sender: ORGANON
  Company Number: CN-ORGANON-O2512CHN001848

PATIENT
  Age: 56 Year
  Sex: Male
  Weight: 77 kg

DRUGS (7)
  1. EZETIMIBE [Suspect]
     Active Substance: EZETIMIBE
     Indication: Coronary artery bypass
     Dosage: 10MG, QD, ORALLY
     Route: 061
     Dates: start: 20251116, end: 20251218
  2. Nicorandil Tablets [Concomitant]
     Indication: Coronary artery bypass
     Dosage: 5MG, TID, ORALLY
     Route: 061
     Dates: start: 20251006, end: 20251218
  3. METOPROLOL SUCCINATE [Concomitant]
     Active Substance: METOPROLOL SUCCINATE
     Indication: Coronary artery bypass
     Dosage: 47.5MG, QD, ORALLY
     Route: 061
     Dates: start: 20251006, end: 20251218
  4. Diltiazem Hydrochloride Sustained-Release Tablets [Concomitant]
     Indication: Coronary artery bypass
     Dosage: 90MG, QD, ORALLY
     Route: 061
     Dates: start: 20251006, end: 20251218
  5. CLOPIDOGREL BISULFATE [Concomitant]
     Active Substance: CLOPIDOGREL BISULFATE
     Indication: Coronary artery bypass
     Dosage: 75MG, QD, ORALLY
     Route: 061
     Dates: start: 20251006, end: 20251218
  6. ATORVASTATIN CALCIUM [Concomitant]
     Active Substance: ATORVASTATIN CALCIUM
     Indication: Coronary artery bypass
     Dosage: 20MG, QD, ORALLY
     Route: 061
     Dates: start: 20251006, end: 20251218
  7. ASPIRIN [Concomitant]
     Active Substance: ASPIRIN
     Indication: Coronary artery bypass
     Dosage: 100MG, QD, ORALLY
     Route: 061
     Dates: start: 20251006, end: 20251218

REACTIONS (3)
  - Renal impairment [Recovering/Resolving]
  - Hepatic function abnormal [Recovering/Resolving]
  - Product use in unapproved indication [Unknown]

NARRATIVE: CASE EVENT DATE: 20251116
